FAERS Safety Report 9225183 (Version 1)
Quarter: 2013Q2

REPORT INFORMATION
  Report Type: Spontaneous
  Country: US (occurrence: None)
  Receive Date: 20130410
  Receipt Date: 20130410
  Transmission Date: 20140414
  Serious: Yes (Other)
  Sender: FDA-Public Use
  Company Number: None

PATIENT
  Age: 37 Year
  Sex: Female
  Weight: 66.5 kg

DRUGS (1)
  1. METHYLNATREXONE [Suspect]
     Route: 058

REACTIONS (3)
  - Nausea [None]
  - Vomiting [None]
  - Headache [None]
